FAERS Safety Report 5846980-9 (Version None)
Quarter: 2008Q3

REPORT INFORMATION
  Report Type: 
  Country: None (occurrence: None)
  Receive Date: 20080815
  Receipt Date: 20080804
  Transmission Date: 20090109
  Serious: Yes (Hospitalization)
  Sender: FDA-Public Use
  Company Number: DE-PFIZER INC-2008061179

PATIENT
  Sex: Male

DRUGS (2)
  1. ZELDOX (CAPSULES) [Suspect]
     Indication: SCHIZOPHRENIA
     Dosage: DAILY DOSE:60MG
     Route: 048
     Dates: start: 20080214, end: 20080217
  2. ZELDOX (CAPSULES) [Suspect]
     Indication: PSYCHOTIC DISORDER

REACTIONS (1)
  - PAROTID GLAND ENLARGEMENT [None]
